FAERS Safety Report 23595746 (Version 1)
Quarter: 2024Q1

REPORT INFORMATION
  Report Type: Spontaneous
  Country: US (occurrence: None)
  Receive Date: 20240304
  Receipt Date: 20240304
  Transmission Date: 20240409
  Serious: Yes (Disabling)
  Sender: FDA-Public Use
  Company Number: None

PATIENT
  Age: 80 Year
  Sex: Male
  Weight: 94.5 kg

DRUGS (5)
  1. ELIQUIS [Suspect]
     Active Substance: APIXABAN
     Indication: Atrial fibrillation
     Dosage: OTHER QUANTITY : 1 TABLET(S);?FREQUENCY : EVERY 12 HOURS;?
     Route: 048
  2. ELIQUIS [Suspect]
     Active Substance: APIXABAN
     Indication: Prophylaxis
  3. XARELTO [Suspect]
     Active Substance: RIVAROXABAN
  4. XANAX [Concomitant]
     Active Substance: ALPRAZOLAM
  5. Esmoeprazole [Concomitant]

REACTIONS (2)
  - Arthralgia [None]
  - Back pain [None]

NARRATIVE: CASE EVENT DATE: 20231114
